FAERS Safety Report 12884469 (Version 1)
Quarter: 2016Q4

REPORT INFORMATION
  Report Type: Spontaneous
  Country: IT (occurrence: IT)
  Receive Date: 20161026
  Receipt Date: 20161026
  Transmission Date: 20170207
  Serious: Yes (Hospitalization)
  Sender: FDA-Public Use
  Company Number: IT-SA-2016SA191634

PATIENT
  Sex: Female

DRUGS (15)
  1. CARDURA [Concomitant]
     Active Substance: DOXAZOSIN MESYLATE
     Dosage: STRENGTH: 2 MG
  2. CARDICOR [Concomitant]
     Active Substance: BISOPROLOL
     Dosage: STRENGTH: 1.25MG
  3. LASIX [Concomitant]
     Active Substance: FUROSEMIDE
     Dosage: STRENGTH: 500 MG
  4. TORVAST [Concomitant]
     Active Substance: ATORVASTATIN
  5. SOLOSTAR [Concomitant]
     Active Substance: DEVICE
     Indication: DIABETES MELLITUS
  6. ROCALTROL [Concomitant]
     Active Substance: CALCITRIOL
     Dosage: STREGTH AND FORM: 0.50MCG SOFT CAPSULE
  7. LANTUS SOLOSTAR [Suspect]
     Active Substance: INSULIN GLARGINE
     Indication: DIABETES MELLITUS
     Route: 058
  8. CORDARONE [Concomitant]
     Active Substance: AMIODARONE HYDROCHLORIDE
     Dosage: STRENGTH: 200 MG
  9. APROVEL [Concomitant]
     Active Substance: IRBESARTAN
     Dosage: STRENGTH: 300 MG
  10. COUMADIN [Concomitant]
     Active Substance: WARFARIN SODIUM
     Dosage: STRENGTH:5 MG DIVISIBLE TABLETS
  11. LYRICA [Concomitant]
     Active Substance: PREGABALIN
     Dosage: STRENGTH:25 MG HARD CAPSULE
  12. NOVORAPID [Suspect]
     Active Substance: INSULIN ASPART
     Indication: DIABETES MELLITUS
     Route: 058
  13. TRITACE [Concomitant]
     Active Substance: RAMIPRIL
     Dosage: STRENGTH: 5 MG
  14. LASIX [Concomitant]
     Active Substance: FUROSEMIDE
     Dosage: STRENGTH: 25 MG
  15. NITRODERM [Concomitant]
     Active Substance: NITROGLYCERIN
     Dosage: FORM: TRANSDERMAL PATCHES

REACTIONS (4)
  - Hypoglycaemic unconsciousness [Recovered/Resolved]
  - Compensatory sweating [Recovered/Resolved]
  - Malaise [Recovered/Resolved]
  - Hypoglycaemia [Recovered/Resolved]

NARRATIVE: CASE EVENT DATE: 20160308
